FAERS Safety Report 5824932-2 (Version None)
Quarter: 2008Q3

REPORT INFORMATION
  Report Type: 
  Country: None (occurrence: None)
  Receive Date: 20080728
  Receipt Date: 20080602
  Transmission Date: 20090109
  Serious: Yes (Death)
  Sender: FDA-Public Use
  Company Number: FR-PFIZER INC-2008061314

PATIENT
  Age: 18 Year
  Sex: Male

DRUGS (5)
  1. ATARAX [Suspect]
     Route: 042
     Dates: start: 20080429, end: 20080429
  2. LEXOMIL [Concomitant]
     Route: 048
     Dates: start: 20080429, end: 20080429
  3. NEXIUM [Concomitant]
     Route: 048
  4. DITROPAN [Concomitant]
     Route: 048
  5. ISOTRETINOIN [Concomitant]
     Route: 048

REACTIONS (1)
  - INTESTINAL OBSTRUCTION [None]
